FAERS Safety Report 20946696 (Version 3)
Quarter: 2022Q3

REPORT INFORMATION
  Report Type: Spontaneous
  Country: US (occurrence: None)
  Receive Date: 20220610
  Receipt Date: 20220728
  Transmission Date: 20221027
  Serious: No
  Sender: FDA-Public Use
  Company Number: 2022A204522

PATIENT
  Sex: Male
  Weight: 49.9 kg

DRUGS (1)
  1. SYMBICORT [Suspect]
     Active Substance: BUDESONIDE\FORMOTEROL FUMARATE DIHYDRATE
     Indication: Chronic obstructive pulmonary disease
     Dosage: 160/4.5 MCG, TWO TIMES A DAY
     Route: 055

REACTIONS (4)
  - Chest injury [Recovered/Resolved]
  - Body height increased [Unknown]
  - Intentional device misuse [Unknown]
  - Wrong technique in device usage process [Unknown]
